FAERS Safety Report 4966504-8 (Version None)
Quarter: 2006Q2

REPORT INFORMATION
  Report Type: 
  Country: None (occurrence: None)
  Receive Date: 20060407
  Receipt Date: 20060222
  Transmission Date: 20061013
  Serious: Yes (Disabling)
  Sender: FDA-Public Use
  Company Number: US-SANOFI-SYNTHELABO-A03200600998

PATIENT
  Sex: Female

DRUGS (7)
  1. AMBIEN [Suspect]
     Indication: INSOMNIA
     Route: 048
     Dates: start: 20051201
  2. METFORMIN [Concomitant]
     Dosage: 2000 MG
     Route: 048
  3. AZITHROMYCIN [Concomitant]
     Dosage: UNK
     Route: 048
     Dates: start: 20051201, end: 20051201
  4. PAXIL CR [Concomitant]
     Route: 048
  5. AMITRIPTYLINE HCL [Concomitant]
     Dosage: 75 MG
     Route: 048
  6. ENBREL [Concomitant]
     Dosage: UNK
     Route: 058
  7. TOPROL-XL [Concomitant]
     Dosage: 100 MG
     Route: 048

REACTIONS (3)
  - CHAPPED LIPS [None]
  - PARAESTHESIA [None]
  - PSORIASIS [None]
